FAERS Safety Report 18550136 (Version 1)
Quarter: 2020Q4

REPORT INFORMATION
  Report Type: Spontaneous
  Country: ES (occurrence: ES)
  Receive Date: 20201126
  Receipt Date: 20201126
  Transmission Date: 20210114
  Serious: Yes (Hospitalization)
  Sender: FDA-Public Use
  Company Number: ES-PFIZER INC-2020462934

PATIENT
  Age: 74 Year
  Sex: Female

DRUGS (10)
  1. OMEPRAZOL [Concomitant]
     Active Substance: OMEPRAZOLE
     Indication: OSTEOARTHRITIS
     Dosage: 20 MG, EVERY 24 H
     Route: 048
     Dates: start: 20170803
  2. SERTRALINE HCL [Suspect]
     Active Substance: SERTRALINE HYDROCHLORIDE
     Indication: OSTEOARTHRITIS
     Dosage: 100 MG, EVERY 24 H
     Route: 048
     Dates: start: 20201028
  3. RAMIPRIL + HIDROCLOROTIAZIDA [Concomitant]
     Active Substance: HYDROCHLOROTHIAZIDE\RAMIPRIL
     Indication: DYSPEPSIA
     Dosage: 5 MG, EVERY 24 H
     Route: 048
     Dates: start: 20190710
  4. ACETYLSALICYLIC ACID/ATORVASTATIN/RAMIPRIL [Concomitant]
     Indication: DYSPEPSIA
     Dosage: 1 DF, EVERY 24 H
     Route: 048
     Dates: start: 20190709
  5. TRAMADOL/PARACETAMOL [Suspect]
     Active Substance: ACETAMINOPHEN\TRAMADOL
     Indication: SCIATICA
     Dosage: 0.5 DF, 3X/DAY (0.5 DF, EVERY 8 H)
     Route: 048
     Dates: start: 20201027
  6. EXELON PATCH [Concomitant]
     Active Substance: RIVASTIGMINE
     Indication: DEMENTIA ALZHEIMER^S TYPE
     Dosage: 9.5 MG, EVERY 24 H
     Route: 062
     Dates: start: 20201029
  7. CALCIUM CARBONATE;CHOLECALCIFEROL;SODIUM [Concomitant]
     Indication: OSTEOPOROSIS
     Dosage: 1 DF, EVERY 24 H
     Route: 048
     Dates: start: 20180109
  8. PREGABALINA [Concomitant]
     Active Substance: PREGABALIN
     Indication: SCIATICA
     Dosage: 75 MG, EVERY 24 H
     Route: 048
     Dates: start: 20201027
  9. NAPROXEN SODIUM. [Concomitant]
     Active Substance: NAPROXEN SODIUM
     Indication: SCIATICA
     Dosage: 550 MG, EVERY 12 H
     Route: 048
     Dates: start: 20201027
  10. ATENOLOL. [Concomitant]
     Active Substance: ATENOLOL
     Indication: HYPERTENSION
     Dosage: 50 MG, EVERY 24 H
     Route: 048
     Dates: start: 20180920

REACTIONS (3)
  - Off label use [Unknown]
  - Disorientation [Recovering/Resolving]
  - Contraindicated product administered [Unknown]

NARRATIVE: CASE EVENT DATE: 20201028
